FAERS Safety Report 18345560 (Version 2)
Quarter: 2020Q4

REPORT INFORMATION
  Report Type: Spontaneous
  Country: IL (occurrence: IL)
  Receive Date: 20201005
  Receipt Date: 20201027
  Transmission Date: 20210114
  Serious: Yes (Death, Other)
  Sender: FDA-Public Use
  Company Number: IL-INCYTE CORPORATION-2020IN009492

PATIENT

DRUGS (4)
  1. OCTREOTIDE. [Suspect]
     Active Substance: OCTREOTIDE
     Indication: PRODUCT USED FOR UNKNOWN INDICATION
     Dosage: UNK
     Route: 065
  2. CYCLOSPORINE. [Suspect]
     Active Substance: CYCLOSPORINE
     Indication: PRODUCT USED FOR UNKNOWN INDICATION
     Dosage: UNK
     Route: 065
  3. METHOTREXATE. [Suspect]
     Active Substance: METHOTREXATE
     Indication: PRODUCT USED FOR UNKNOWN INDICATION
     Dosage: UNK
     Route: 065
  4. JAKAVI [Suspect]
     Active Substance: RUXOLITINIB
     Indication: PRODUCT USED FOR UNKNOWN INDICATION
     Dosage: UNK, QD
     Route: 065

REACTIONS (9)
  - Diarrhoea [Recovering/Resolving]
  - Haemosiderosis [Unknown]
  - Death [Fatal]
  - Graft versus host disease in liver [Unknown]
  - Sepsis [Recovered/Resolved]
  - Septic shock [Unknown]
  - Diarrhoea haemorrhagic [Unknown]
  - Bacteraemia [Unknown]
  - Graft versus host disease in gastrointestinal tract [Unknown]
